FAERS Safety Report 7427618-6 (Version None)
Quarter: 2011Q2

REPORT INFORMATION
  Report Type: 
  Country: None (occurrence: None)
  Receive Date: 20110420
  Receipt Date: 20110411
  Transmission Date: 20111010
  Serious: Yes (Life-Threatening)
  Sender: FDA-Public Use
  Company Number: JP-BRISTOL-MYERS SQUIBB COMPANY-15589419

PATIENT
  Age: 58 Year
  Sex: Female

DRUGS (6)
  1. MITOMYCIN [Suspect]
     Indication: ENDOMETRIAL CANCER
     Dosage: MITOMYCIN INJ
     Route: 042
     Dates: start: 20100902, end: 20110113
  2. CARBOPLATIN [Concomitant]
     Route: 042
     Dates: start: 20100804, end: 20100804
  3. GRANISETRON HCL [Concomitant]
     Route: 042
     Dates: start: 20100902, end: 20110113
  4. MITOMYCIN [Suspect]
     Indication: UTERINE CANCER
     Dosage: MITOMYCIN INJ
     Route: 042
     Dates: start: 20100902, end: 20110113
  5. PACLITAXEL [Concomitant]
     Route: 042
     Dates: start: 20100804, end: 20100804
  6. IRINOTECAN HCL [Suspect]
     Route: 042
     Dates: start: 20100902, end: 20110113

REACTIONS (1)
  - HAEMOLYTIC URAEMIC SYNDROME [None]
